FAERS Safety Report 9937870 (Version 1)
Quarter: 2014Q1

REPORT INFORMATION
  Report Type: Spontaneous
  Country: US (occurrence: US)
  Receive Date: 20140303
  Receipt Date: 20140303
  Transmission Date: 20141002
  Serious: No
  Sender: FDA-Public Use
  Company Number: US-BIOGENIDEC-2014BI016559

PATIENT
  Age: 61 Year
  Sex: Female

DRUGS (7)
  1. TECFIDERA [Suspect]
     Indication: MULTIPLE SCLEROSIS
     Route: 048
  2. ASPIRIN EC LO-DOSE [Concomitant]
  3. BENAZEPRIL HCI [Concomitant]
  4. BUPROPION HCI [Concomitant]
  5. CRESTOR [Concomitant]
  6. LORAZEPAM [Concomitant]
  7. METFORMIN HCI [Concomitant]

REACTIONS (1)
  - Hyperglycaemia [Unknown]
